FAERS Safety Report 7644942-2 (Version None)
Quarter: 2011Q3

REPORT INFORMATION
  Report Type: 
  Country: None (occurrence: None)
  Receive Date: 20110729
  Receipt Date: 20110721
  Transmission Date: 20111222
  Serious: Yes (Death)
  Sender: FDA-Public Use
  Company Number: US-GLAXOSMITHKLINE-A0916575A

PATIENT
  Age: 83 Year
  Sex: Male

DRUGS (10)
  1. CORTICOSTEROIDS [Concomitant]
     Indication: IDIOPATHIC THROMBOCYTOPENIC PURPURA
     Dates: start: 20110129
  2. LASIX [Concomitant]
  3. AMLODIPINE BESYLATE [Concomitant]
  4. OXYBUTYNIN [Concomitant]
  5. OMEPRAZOLE [Concomitant]
  6. SPIRONOLACTONE [Concomitant]
  7. PROMACTA [Suspect]
     Indication: IDIOPATHIC THROMBOCYTOPENIC PURPURA
     Dosage: 50MG PER DAY
     Route: 048
     Dates: start: 20110211, end: 20110225
  8. IMMUNE GLOBULIN INTRAVENOUS (HUMAN) [Concomitant]
     Indication: IDIOPATHIC THROMBOCYTOPENIC PURPURA
     Dates: start: 20110129, end: 20110130
  9. ALBUTEROL SULFATE AUTOHALER [Concomitant]
  10. RITUXIMAB [Concomitant]
     Indication: IDIOPATHIC THROMBOCYTOPENIC PURPURA
     Dates: start: 20110203

REACTIONS (2)
  - GASTROINTESTINAL HAEMORRHAGE [None]
  - DRUG INEFFECTIVE [None]
